FAERS Safety Report 8603374 (Version 2)
Quarter: 2014Q1

REPORT INFORMATION
  Report Type: Spontaneous
  Country: US (occurrence: None)
  Receive Date: 20120323
  Receipt Date: 20130305
  Transmission Date: 20141002
  Serious: Yes (Hospitalization, Other)
  Sender: FDA-Public Use
  Company Number: 163-21880-10122539

PATIENT
  Age: 71 Year
  Sex: Male
  Weight: 90.4 kg

DRUGS (15)
  1. REVLIMID [Suspect]
     Indication: PLASMA CELL MYELOMA
     Dosage: 25 MG, DAILY X 21 OF 28 DAYS, PO
     Route: 048
     Dates: start: 20101129
  2. VELCADE (BORTEZOMIB) [Concomitant]
  3. DEXAMETHASONE (DEXAMETHASONE) [Concomitant]
  4. BACTRIM [Concomitant]
  5. DAPSONE [Concomitant]
  6. MS CONTIN [Concomitant]
  7. ASPIRIN [Concomitant]
  8. LISINOPRIL (LISINOPRIL) [Concomitant]
  9. METOPROLOL TARTRATE [Concomitant]
  10. FLOMAX [Concomitant]
  11. CALCIUM PLUS VITAMIN D (OS-CAL) [Concomitant]
  12. ZOMETA (ZOLEDRONIC ACID) [Concomitant]
  13. MYCELEX [Concomitant]
  14. PRILOSEC [Concomitant]
  15. ACYCLOVIR [Concomitant]

REACTIONS (4)
  - Viral infection [None]
  - Rash [None]
  - Hypersensitivity [None]
  - Pruritus [None]
